FAERS Safety Report 9852965 (Version 1)
Quarter: 2014Q1

REPORT INFORMATION
  Report Type: Spontaneous
  Country: AU (occurrence: None)
  Receive Date: 20140127
  Receipt Date: 20140127
  Transmission Date: 20141002
  Serious: Yes (Other)
  Sender: FDA-Public Use
  Company Number: 2013000414

PATIENT
  Sex: Male

DRUGS (5)
  1. ACEON (PERINDOPRIL ERBUMINE) TABLET [Suspect]
     Indication: PRODUCT USED FOR UNKNOWN INDICATION
  2. ALCURONIUM CHLORIDE [Suspect]
     Indication: PRODUCT USED FOR UNKNOWN INDICATION
  3. TORADOL (KETOROLAC TROMETHAMINE) [Suspect]
     Indication: PRODUCT USED FOR UNKNOWN INDICATION
  4. VOLTAREN (DICLOFENAC SODIUM) [Suspect]
     Indication: PRODUCT USED FOR UNKNOWN INDICATION
  5. NEOSTIGMINE BROMIDE [Suspect]

REACTIONS (3)
  - Purpura [None]
  - Rash maculo-papular [None]
  - Face oedema [None]
